FAERS Safety Report 9633909 (Version 1)
Quarter: 2013Q4

REPORT INFORMATION
  Report Type: Spontaneous
  Country: GB (occurrence: GB)
  Receive Date: 20131021
  Receipt Date: 20131021
  Transmission Date: 20140711
  Serious: Yes (Other)
  Sender: FDA-Public Use
  Company Number: GB-JNJFOC-20131006738

PATIENT
  Age: 23 Year
  Sex: Female

DRUGS (5)
  1. MIGRALEVE [Suspect]
     Indication: MIGRAINE PROPHYLAXIS
     Route: 065
  2. PARACETAMOL [Suspect]
     Indication: MIGRAINE PROPHYLAXIS
     Route: 065
  3. PARACETAMOL [Suspect]
     Indication: DRUG DEPENDENCE
     Route: 065
  4. NUROFEN PLUS [Suspect]
     Indication: MIGRAINE PROPHYLAXIS
     Route: 048
  5. NUROFEN PLUS [Suspect]
     Indication: DRUG DEPENDENCE
     Route: 048

REACTIONS (1)
  - Drug dependence [Not Recovered/Not Resolved]
